APPROVED DRUG PRODUCT: FLUDEOXYGLUCOSE F18
Active Ingredient: FLUDEOXYGLUCOSE F-18
Strength: 20-200mCi/ML
Dosage Form/Route: INJECTABLE;INTRAVENOUS
Application: A203801 | Product #001 | TE Code: AP
Applicant: TRUSTEES OF THE UNIV OF PENNSYLVANIA
Approved: Oct 29, 2014 | RLD: No | RS: No | Type: RX